FAERS Safety Report 12082535 (Version 1)
Quarter: 2016Q1

REPORT INFORMATION
  Report Type: Spontaneous
  Country: CA (occurrence: CA)
  Receive Date: 20160217
  Receipt Date: 20160217
  Transmission Date: 20160526
  Serious: Yes (Other)
  Sender: FDA-Public Use
  Company Number: CA-ALVOGEN-2016-ALVOGEN-021925

PATIENT
  Age: 44 Year
  Sex: Male

DRUGS (2)
  1. INFLIXIMAB [Suspect]
     Active Substance: INFLIXIMAB
     Indication: CROHN^S DISEASE
     Route: 042
  2. CLINDAMYCIN [Suspect]
     Active Substance: CLINDAMYCIN\CLINDAMYCIN PHOSPHATE
     Indication: TOOTH INFECTION

REACTIONS (5)
  - Alveolar osteitis [Unknown]
  - Tooth infection [Unknown]
  - Clostridium difficile infection [Unknown]
  - Toothache [Unknown]
  - Nasopharyngitis [Unknown]
